FAERS Safety Report 4331595-4 (Version None)
Quarter: 2004Q2

REPORT INFORMATION
  Report Type: 
  Country: None (occurrence: None)
  Receive Date: 20040402
  Receipt Date: 20040326
  Transmission Date: 20050107
  Serious: Yes (Disabling)
  Sender: FDA-Public Use
  Company Number: US-MERCK-0403USA02473

PATIENT
  Age: 74 Year
  Sex: Female

DRUGS (7)
  1. [THERAPY UNSPECIFIED] [Concomitant]
     Route: 065
  2. ASPIRIN [Concomitant]
     Route: 065
  3. ATENOLOL [Concomitant]
     Route: 065
  4. ZETIA [Suspect]
     Indication: BLOOD CHOLESTEROL INCREASED
     Route: 048
     Dates: start: 20031101
  5. GLUCOTROL [Concomitant]
     Route: 065
  6. DIOVAN [Concomitant]
     Route: 065
  7. VITAMIN B COMPLEX [Concomitant]
     Route: 065

REACTIONS (2)
  - LABORATORY TEST ABNORMAL [None]
  - MUSCLE CRAMP [None]
